FAERS Safety Report 6026224-8 (Version None)
Quarter: 2008Q4

REPORT INFORMATION
  Report Type: 
  Country: None (occurrence: None)
  Receive Date: 20081222
  Receipt Date: 20080828
  Transmission Date: 20090506
  Serious: No
  Sender: FDA-Public Use
  Company Number: ALL1-2008-02462

PATIENT
  Age: 39 Year
  Sex: Female
  Weight: 52.2 kg

DRUGS (3)
  1. VYVANSE [Suspect]
     Indication: ATTENTION DEFICIT/HYPERACTIVITY DISORDER
     Dosage: 70 MG, 1X/DAY:QD, ORAL
     Route: 048
     Dates: start: 20080701
  2. OMEPRAZOLE [Concomitant]
  3. ULTRAM [Concomitant]

REACTIONS (3)
  - ANOREXIA [None]
  - DRUG EFFECT DECREASED [None]
  - DRY MOUTH [None]
